FAERS Safety Report 18970393 (Version 2)
Quarter: 2021Q1

REPORT INFORMATION
  Report Type: Spontaneous
  Country: JP (occurrence: JP)
  Receive Date: 20210304
  Receipt Date: 20210315
  Transmission Date: 20210420
  Serious: Yes (Other)
  Sender: FDA-Public Use
  Company Number: JP-PFIZER INC-2021218719

PATIENT
  Age: 40 Year
  Sex: Female

DRUGS (2)
  1. CARBOPLATIN. [Suspect]
     Active Substance: CARBOPLATIN
     Indication: BREAST CANCER METASTATIC
     Dosage: 6 CYCLIC (AUC 5, DAY 1 )
     Dates: start: 201411
  2. GEMCITABINE HYDROCHLORIDE. [Suspect]
     Active Substance: GEMCITABINE HYDROCHLORIDE
     Indication: BREAST CANCER
     Dosage: 1000 MG/M2, FREQ:6 {CYCLICAL};DAY 1, DAY 8
     Dates: start: 201411

REACTIONS (3)
  - Nausea [Unknown]
  - Haematotoxicity [Unknown]
  - Malaise [Unknown]
